FAERS Safety Report 5297671-7 (Version None)
Quarter: 2007Q2

REPORT INFORMATION
  Report Type: 
  Country: None (occurrence: None)
  Receive Date: 20070409
  Receipt Date: 20070327
  Transmission Date: 20071010
  Serious: Yes (Other)
  Sender: FDA-Public Use
  Company Number: CHNY2007DE01438

PATIENT
  Sex: Male

DRUGS (1)
  1. NICOTINE [Suspect]
     Dosage: 14 MG, QD, TRANSDERMAL
     Route: 062
     Dates: start: 20070301, end: 20070301

REACTIONS (1)
  - CIRCULATORY COLLAPSE [None]
